FAERS Safety Report 23118196 (Version 4)
Quarter: 2023Q4

REPORT INFORMATION
  Report Type: Report from Study
  Country: CN (occurrence: CN)
  Receive Date: 20231027
  Receipt Date: 20231218
  Transmission Date: 20240110
  Serious: Yes (Hospitalization)
  Sender: FDA-Public Use
  Company Number: CN-BEIGENE-BGN-2023-011454

PATIENT
  Age: 58 Year
  Sex: Male
  Weight: 54.6 kg

DRUGS (4)
  1. CARBOPLATIN [Suspect]
     Active Substance: CARBOPLATIN
     Indication: Transitional cell carcinoma
     Dosage: AUC 4.5 D1/3WEEKS
     Route: 042
     Dates: start: 20230608, end: 20230919
  2. GEMCITABINE [Suspect]
     Active Substance: GEMCITABINE
     Indication: Transitional cell carcinoma
     Dosage: 1000 MG/M2, Q3W, D1, D8
     Route: 042
     Dates: start: 20230608, end: 20230925
  3. GEMCITABINE [Suspect]
     Active Substance: GEMCITABINE
     Dosage: NO TREATMENT
     Route: 065
  4. LEVAMLODIPINE BESYLATE [Concomitant]
     Active Substance: LEVAMLODIPINE BESYLATE
     Indication: Hypertension
     Dosage: 1 DOSAGE FORM, QD
     Route: 065
     Dates: start: 202302, end: 202308

REACTIONS (3)
  - Pain in extremity [Recovered/Resolved]
  - Anaemia [Recovered/Resolved]
  - Haematuria [Not Recovered/Not Resolved]

NARRATIVE: CASE EVENT DATE: 20230401
